FAERS Safety Report 21053749 (Version 1)
Quarter: 2022Q3

REPORT INFORMATION
  Report Type: Spontaneous
  Country: CH (occurrence: CH)
  Receive Date: 20220707
  Receipt Date: 20220707
  Transmission Date: 20221026
  Serious: Yes (Hospitalization, Other)
  Sender: FDA-Public Use
  Company Number: 22_00019319(0)

PATIENT
  Age: 6 Month
  Sex: Male
  Weight: 6 kg

DRUGS (5)
  1. DEXMEDETOMIDINE HYDROCHLORIDE [Suspect]
     Active Substance: DEXMEDETOMIDINE HYDROCHLORIDE
     Indication: Sedative therapy
     Dosage: 18 MCG (3 MCG/KG BODY WEIGHT)
     Route: 045
  2. DEXMEDETOMIDINE HYDROCHLORIDE [Suspect]
     Active Substance: DEXMEDETOMIDINE HYDROCHLORIDE
     Indication: Premedication
     Dosage: 4 MCG/KG BODY WEIGHT WAS ADMINISTERED, WAS REPEATED AFTER 30-40 MIN, 48 MCG
     Route: 045
  3. PHENYLEPHRINE [Suspect]
     Active Substance: PHENYLEPHRINE HYDROCHLORIDE
     Indication: Mydriasis
     Dosage: 2.5 %
     Route: 047
  4. PROPOFOL [Suspect]
     Active Substance: PROPOFOL
     Indication: Sedative therapy
     Dosage: A REPEATED DOSE OF 4 MG (0.7 MG/KG BODYWEIGHT) PROPOFOL 1 PERCENT
     Route: 042
  5. TROPICAMIDE [Concomitant]
     Active Substance: TROPICAMIDE
     Indication: Mydriasis
     Dosage: 0.5 %
     Route: 047

REACTIONS (3)
  - Trigemino-cardiac reflex [Recovered/Resolved]
  - Product use issue [Unknown]
  - Product administered to patient of inappropriate age [Unknown]
